FAERS Safety Report 5400982-5 (Version None)
Quarter: 2007Q3

REPORT INFORMATION
  Report Type: 
  Country: None (occurrence: None)
  Receive Date: 20070730
  Receipt Date: 20070722
  Transmission Date: 20080115
  Serious: Yes (Death, Life-Threatening, Disabling)
  Sender: FDA-Public Use
  Company Number: US-MERCK-0707USA03051

PATIENT
  Age: 47 Year
  Sex: Female

DRUGS (4)
  1. AMLODIPINE BESYLATE [Concomitant]
     Route: 065
  2. PRINIVIL [Suspect]
     Route: 048
  3. [THERAPY UNSPECIFIED] [Concomitant]
     Route: 065
  4. METFORMIN [Concomitant]
     Route: 065

REACTIONS (4)
  - ARRHYTHMIA [None]
  - CARDIAC ARREST [None]
  - CARDIAC HYPERTROPHY [None]
  - CHEST PAIN [None]
